FAERS Safety Report 5333991-5 (Version None)
Quarter: 2007Q2

REPORT INFORMATION
  Report Type: 
  Country: None (occurrence: None)
  Receive Date: 20070524
  Receipt Date: 20070514
  Transmission Date: 20071010
  Serious: Yes (Hospitalization)
  Sender: FDA-Public Use
  Company Number: JP-PFIZER INC-2007032173

PATIENT
  Sex: Male

DRUGS (9)
  1. IRINOTECAN HCL [Suspect]
     Indication: RECTAL CANCER
     Dosage: DAILY DOSE:230MG
     Route: 042
     Dates: start: 20061023, end: 20070329
  2. CALCIUM FOLINATE [Suspect]
     Indication: RECTAL CANCER
     Dosage: DAILY DOSE:310MG
     Route: 042
     Dates: start: 20061023, end: 20070329
  3. FLUOROURACIL [Suspect]
     Indication: RECTAL CANCER
     Dosage: DAILY DOSE:600MG
     Route: 042
     Dates: start: 20061023, end: 20070329
  4. FLUOROURACIL [Suspect]
     Dosage: DAILY DOSE:3700MG
     Route: 042
     Dates: start: 20061023, end: 20070329
  5. NORVASC [Concomitant]
     Indication: HYPERTENSION
     Dosage: DAILY DOSE:5MG
     Route: 048
     Dates: start: 19840101, end: 20070405
  6. ALMARL [Concomitant]
     Indication: HYPERTENSION
     Route: 048
     Dates: start: 19840101, end: 20070405
  7. AMARYL [Concomitant]
     Indication: DIABETES MELLITUS
     Dosage: DAILY DOSE:2MG
     Route: 048
     Dates: start: 20030101, end: 20070405
  8. OLMETEC [Concomitant]
     Indication: HYPERTENSION
     Dosage: DAILY DOSE:20MG
     Route: 048
     Dates: start: 19840101, end: 20070405
  9. GLUCOBAY [Concomitant]
     Indication: DIABETES MELLITUS
     Route: 048
     Dates: start: 20030101, end: 20070405

REACTIONS (10)
  - ANOREXIA [None]
  - BLOOD BILIRUBIN INCREASED [None]
  - DIARRHOEA [None]
  - DISSEMINATED INTRAVASCULAR COAGULATION [None]
  - DYSPEPSIA [None]
  - NAUSEA [None]
  - PYREXIA [None]
  - RENAL IMPAIRMENT [None]
  - SEPSIS [None]
  - VOMITING [None]
